FAERS Safety Report 6341607-4 (Version None)
Quarter: 2009Q3

REPORT INFORMATION
  Report Type: 
  Country: None (occurrence: None)
  Receive Date: 20090902
  Receipt Date: 20090902
  Transmission Date: 20100115
  Serious: No
  Sender: FDA-Public Use
  Company Number: None

PATIENT
  Age: 64 Year
  Sex: Female

DRUGS (10)
  1. LOVAZA [Suspect]
     Indication: BLOOD TRIGLYCERIDES INCREASED
     Dosage: 2 CAPSULES TWICE A DAY OVER 2 YEARS
  2. TRICOR [Concomitant]
  3. ACTOS [Concomitant]
  4. GLIMEPIRIDE [Concomitant]
  5. METFORMIN HCL [Concomitant]
  6. NEXIUM [Concomitant]
  7. COZAAR [Concomitant]
  8. LIPITOR [Concomitant]
  9. PAROXETINE HCL [Concomitant]
  10. TRAMADOL HCL [Concomitant]

REACTIONS (3)
  - BLOOD TRIGLYCERIDES INCREASED [None]
  - DRUG INEFFECTIVE [None]
  - PRODUCT ODOUR ABNORMAL [None]
